FAERS Safety Report 7251323-2 (Version None)
Quarter: 2011Q1

REPORT INFORMATION
  Report Type: 
  Country: None (occurrence: None)
  Receive Date: 20110128
  Receipt Date: 20110121
  Transmission Date: 20110831
  Serious: Yes (Death, Hospitalization)
  Sender: FDA-Public Use
  Company Number: NL-B.I. PHARMACEUTICALS,INC./RIDGEFIELD-2010-DE-05458DE

PATIENT
  Sex: Male
  Weight: 76 kg

DRUGS (27)
  1. MORFIN [Concomitant]
     Route: 051
     Dates: start: 20100930, end: 20101002
  2. CIPROFLOXACIN HCL [Concomitant]
     Dosage: 1000 MG
     Route: 048
     Dates: start: 20100929, end: 20101011
  3. NADROPARINE [Concomitant]
     Dosage: 1.6 ML
     Route: 058
     Dates: start: 20100929, end: 20101012
  4. PREDNISOLONE [Concomitant]
     Dosage: 15 MG
     Route: 048
     Dates: start: 20101005, end: 20101009
  5. PREDNISOLONE [Concomitant]
     Dosage: 20 MG
     Route: 048
     Dates: start: 20101028, end: 20101031
  6. DABIGATRAN [Suspect]
     Indication: DEEP VEIN THROMBOSIS
     Dosage: 300 MG
     Route: 048
     Dates: start: 20100921, end: 20100929
  7. ESOMEPRAZOLE MAGNESIUM [Concomitant]
     Dosage: 20 MG
     Route: 048
     Dates: start: 20100929, end: 20101012
  8. AMOXICILLINE/CLAVUL [Concomitant]
     Dosage: STRENGHT: 1000/200 MG; DAILY DOSE: 3 KEER PER DAG 1 ST
     Route: 042
     Dates: start: 20100929, end: 20101011
  9. ESOMEPRAZOLE MAGNESIUM [Concomitant]
     Dosage: 40 MG
     Route: 048
     Dates: start: 20101012, end: 20101030
  10. PREDNISOLONE [Concomitant]
     Dosage: 30 MG
     Route: 048
     Dates: start: 20100930, end: 20101005
  11. PROTROMBINECOMPL [Concomitant]
     Dosage: STRENGTH: 250 IE
     Route: 042
     Dates: start: 20101023, end: 20101023
  12. PRETREATMENT [Suspect]
  13. NADROPARINE [Concomitant]
     Route: 058
     Dates: start: 20101021, end: 20101021
  14. NADROPARINE [Concomitant]
     Dosage: 1.6 ML
     Route: 058
     Dates: start: 20101026, end: 20101031
  15. ACENOCOUMAROL [Concomitant]
     Route: 048
     Dates: start: 20100929, end: 20101026
  16. ACETYLSAL CARD [Concomitant]
     Dosage: 80 MG
     Route: 048
     Dates: start: 20101012, end: 20101026
  17. MACROGOL [Concomitant]
     Dosage: 1DD2
     Route: 048
     Dates: start: 20100930, end: 20101030
  18. AUGMENTIN '125' [Concomitant]
     Dosage: 1000/200MG
     Route: 042
  19. ALFUZOSINE [Concomitant]
     Dosage: 10 MG
     Route: 048
     Dates: start: 20100929, end: 20101031
  20. ACETAMINOPHEN [Concomitant]
     Dosage: 4000 MG
     Dates: start: 20100929, end: 20101031
  21. AMOXICILLINE/CLAVUL [Concomitant]
     Dosage: STRENGTH: 500/125MG; 3 KEER PER DAG 1ST
     Route: 048
     Dates: start: 20101011, end: 20101011
  22. SALBUTAMOL/IPATROPIUM [Concomitant]
     Dosage: 10 ML
     Dates: start: 20100930, end: 20101031
  23. PREDNISOLONE [Concomitant]
     Dosage: 30 MG
     Route: 048
     Dates: start: 20101028, end: 20101031
  24. ACETYLSAL CARD [Concomitant]
     Indication: TRANSIENT ISCHAEMIC ATTACK
     Dosage: 80 MG
     Route: 048
     Dates: start: 19900101
  25. FLUTICASONE PROPIONATE [Concomitant]
     Dosage: STRENGTH: 250UG/DO DISKUS 60DO
     Route: 055
     Dates: start: 20100929, end: 20101031
  26. TRAMADOL [Concomitant]
     Dosage: 200 MG
     Route: 048
     Dates: start: 20100929, end: 20101003
  27. NATRIUMCHLORIDE [Concomitant]
     Dosage: STRENGTH: 0.9%, 6 KEER PER DAG 1000ML
     Route: 042
     Dates: start: 20101023, end: 20101031

REACTIONS (5)
  - ACUTE RESPIRATORY FAILURE [None]
  - DEEP VEIN THROMBOSIS [None]
  - PULMONARY EMBOLISM [None]
  - EMBOLISM ARTERIAL [None]
  - ASTHMA [None]
